FAERS Safety Report 14608253 (Version 1)
Quarter: 2018Q1

REPORT INFORMATION
  Report Type: Spontaneous
  Country: GB (occurrence: GB)
  Receive Date: 20180307
  Receipt Date: 20180307
  Transmission Date: 20180509
  Serious: Yes (Death, Other)
  Sender: FDA-Public Use
  Company Number: GB-PFIZER INC-2018094095

PATIENT
  Age: 23 Year
  Sex: Female

DRUGS (2)
  1. PREGABALIN. [Suspect]
     Active Substance: PREGABALIN
     Dosage: UNK
  2. LOPERAMIDE [Suspect]
     Active Substance: LOPERAMIDE
     Dosage: UNK

REACTIONS (10)
  - Drug level increased [Fatal]
  - Loss of consciousness [Unknown]
  - Skin discolouration [Unknown]
  - Pneumonia [Fatal]
  - Cardiac arrest [Fatal]
  - Brain injury [Fatal]
  - Pallor [Unknown]
  - Breath sounds abnormal [Unknown]
  - Toxicity to various agents [Fatal]
  - Respiratory arrest [Unknown]

NARRATIVE: CASE EVENT DATE: 201710
